FAERS Safety Report 9760965 (Version 3)
Quarter: 2014Q2

REPORT INFORMATION
  Report Type: Spontaneous
  Country: US (occurrence: US)
  Receive Date: 20131216
  Receipt Date: 20140417
  Transmission Date: 20141212
  Serious: Yes (Other)
  Sender: FDA-Public Use
  Company Number: US-PFIZER INC-2013357370

PATIENT
  Age: 62 Year
  Sex: Female
  Weight: 118 kg

DRUGS (5)
  1. DICLOFENAC SODIUM / MISOPROSTOL [Suspect]
     Indication: INFLAMMATION
     Dosage: MISOPROSTOL 0.2MG /DICLOFENAC SODIUM 75MG, 3X/DAY
     Route: 048
     Dates: start: 2013, end: 201311
  2. DICLOFENAC SODIUM / MISOPROSTOL [Suspect]
     Indication: BACK PAIN
  3. DICLOFENAC SODIUM / MISOPROSTOL [Suspect]
     Indication: MUSCULOSKELETAL STIFFNESS
  4. HYDROCODONE W/ACETAMINOPHEN [Concomitant]
     Indication: PAIN IN EXTREMITY
     Dosage: UNK. EVERY 4 TO 6 HRS
  5. HYDROCODONE W/ACETAMINOPHEN [Concomitant]
     Indication: PAIN IN EXTREMITY
     Dosage: 10MG HYDROCODONE/325 MG ACETAMINOPHEN  ,EVERY 4 TO 6 HOURS

REACTIONS (2)
  - Pneumonia [Unknown]
  - Drug ineffective [Unknown]
